FAERS Safety Report 4581766-7 (Version None)
Quarter: 2005Q1

REPORT INFORMATION
  Report Type: 
  Country: None (occurrence: None)
  Receive Date: 20050214
  Receipt Date: 20040225
  Transmission Date: 20050727
  Serious: Yes (Life-Threatening, Hospitalization, Other)
  Sender: FDA-Public Use
  Company Number: US012829

PATIENT
  Age: 17 Year
  Sex: Female

DRUGS (2)
  1. LAMICTAL [Suspect]
     Dosage: 150MG TWICE PER DAY
     Route: 048
     Dates: start: 20031101
  2. PROVIGIL [Suspect]
     Indication: NARCOLEPSY
     Dosage: 100MG TWICE PER DAY
     Route: 048
     Dates: start: 20031202, end: 20040224

REACTIONS (6)
  - APLASIA PURE RED CELL [None]
  - FEELING ABNORMAL [None]
  - HAEMATOCRIT DECREASED [None]
  - HAEMOGLOBIN DECREASED [None]
  - LETHARGY [None]
  - RED BLOOD CELL COUNT DECREASED [None]
